FAERS Safety Report 7691333-4 (Version None)
Quarter: 2011Q3

REPORT INFORMATION
  Report Type: 
  Country: None (occurrence: None)
  Receive Date: 20110818
  Receipt Date: 20110804
  Transmission Date: 20111222
  Serious: Yes (Other)
  Sender: FDA-Public Use
  Company Number: PHHY2011DE67522

PATIENT
  Age: 77 Year
  Sex: Male

DRUGS (6)
  1. FLUVASTATIN SODIUM [Concomitant]
  2. DIOVAN HCT [Suspect]
     Dosage: UNK
     Route: 048
  3. PANTOPRAZOLE [Concomitant]
  4. PREDNISOLONE [Concomitant]
  5. HYDROCHLOROTHIAZIDE [Suspect]
     Dosage: UNK
  6. ASPIRIN [Concomitant]

REACTIONS (4)
  - ANAEMIA [None]
  - HAEMOGLOBIN DECREASED [None]
  - PLATELET COUNT DECREASED [None]
  - MYELODYSPLASTIC SYNDROME [None]
